FAERS Safety Report 7871887-5 (Version None)
Quarter: 2011Q4

REPORT INFORMATION
  Report Type: 
  Country: None (occurrence: None)
  Receive Date: 20111029
  Receipt Date: 20110310
  Transmission Date: 20120403
  Serious: No
  Sender: FDA-Public Use
  Company Number: US-AMGEN-USASP2011013521

PATIENT
  Age: 49 Year
  Sex: Female

DRUGS (3)
  1. ENBREL [Suspect]
     Indication: PSORIASIS
  2. LIPITOR [Concomitant]
     Dosage: UNK
  3. ENBREL [Suspect]
     Indication: PSORIATIC ARTHROPATHY
     Dosage: 25 MG, 3 TIMES/WK
     Dates: start: 20041209

REACTIONS (8)
  - PSORIASIS [None]
  - TOTAL CHOLESTEROL/HDL RATIO ABNORMAL [None]
  - INCREASED INSULIN REQUIREMENT [None]
  - CHEST PAIN [None]
  - BLOOD GLUCOSE INCREASED [None]
  - HYPERSOMNIA [None]
  - DRUG EFFECT DECREASED [None]
  - DYSPEPSIA [None]
